FAERS Safety Report 6729786-8 (Version None)
Quarter: 2010Q2

REPORT INFORMATION
  Report Type: 
  Country: None (occurrence: None)
  Receive Date: 20100518
  Receipt Date: 20100507
  Transmission Date: 20101027
  Serious: Yes (Death, Other)
  Sender: FDA-Public Use
  Company Number: US-PFIZER INC-2010042449

PATIENT
  Sex: Female
  Weight: 56 kg

DRUGS (1)
  1. ZYVOX [Suspect]
     Indication: URINARY TRACT INFECTION ENTEROCOCCAL
     Dosage: 600 MG, 2X/DAY
     Route: 042
     Dates: start: 20100318, end: 20100327

REACTIONS (1)
  - PLATELET COUNT DECREASED [None]
